FAERS Safety Report 23279840 (Version 1)
Quarter: 2023Q4

REPORT INFORMATION
  Report Type: Spontaneous
  Country: US (occurrence: US)
  Receive Date: 20231209
  Receipt Date: 20231209
  Transmission Date: 20240110
  Serious: Yes (Hospitalization, Other)
  Sender: FDA-Public Use
  Company Number: US-MLMSERVICE-20231122-4681057-1

PATIENT
  Age: 68 Year
  Sex: Female

DRUGS (1)
  1. ALLOPURINOL [Suspect]
     Active Substance: ALLOPURINOL
     Indication: Gouty arthritis

REACTIONS (4)
  - Acute kidney injury [Recovered/Resolved]
  - Renal vasculitis [Recovered/Resolved]
  - Hepatic enzyme increased [Unknown]
  - Vasculitis necrotising [Recovered/Resolved]
